FAERS Safety Report 6543631-5 (Version None)
Quarter: 2010Q1

REPORT INFORMATION
  Report Type: 
  Country: None (occurrence: None)
  Receive Date: 20100120
  Receipt Date: 20100118
  Transmission Date: 20100710
  Serious: Yes (Hospitalization)
  Sender: FDA-Public Use
  Company Number: FR-SANOFI-AVENTIS-A02200902251

PATIENT
  Age: 41 Year
  Sex: Male

DRUGS (2)
  1. HYDROXYCHLOROQUINE SULFATE [Suspect]
     Indication: ECZEMA
     Dosage: UNIT DOSE: 200 MG
     Route: 048
     Dates: start: 20090724, end: 20090807
  2. ISOPTIN [Suspect]
     Indication: DRUG USE FOR UNKNOWN INDICATION
     Route: 048

REACTIONS (1)
  - DYSHIDROSIS [None]
